FAERS Safety Report 7180154-7 (Version None)
Quarter: 2010Q4

REPORT INFORMATION
  Report Type: 
  Country: None (occurrence: None)
  Receive Date: 20101221
  Receipt Date: 20101210
  Transmission Date: 20110411
  Serious: No
  Sender: FDA-Public Use
  Company Number: US-PFIZER INC-2010139265

PATIENT
  Sex: Female

DRUGS (11)
  1. PROTONIX [Suspect]
     Indication: ABDOMINAL DISCOMFORT
     Dosage: UNK
  2. AZITHROMYCIN [Interacting]
     Indication: EAR PAIN
     Dosage: UNK
  3. AZITHROMYCIN [Interacting]
     Indication: OROPHARYNGEAL PAIN
  4. DYAZIDE [Concomitant]
     Indication: BLOOD PRESSURE
     Dosage: UNK
     Route: 048
  5. KEPPRA [Concomitant]
     Indication: CONVULSION
     Dosage: UNK
     Route: 048
  6. ZESTRIL [Concomitant]
     Indication: BLOOD PRESSURE
     Dosage: UNK
     Route: 048
  7. PAXIL CR [Concomitant]
     Indication: DEPRESSION
     Dosage: UNK
     Route: 048
  8. MULTI-VITAMINS [Concomitant]
     Dosage: UNK
  9. SOMA [Concomitant]
     Indication: MUSCLE SPASMS
     Dosage: UNK
     Route: 048
  10. ATARAX [Concomitant]
     Route: 048
  11. PREDNISONE [Concomitant]

REACTIONS (2)
  - DRUG INEFFECTIVE [None]
  - DRUG INTERACTION [None]
